FAERS Safety Report 5962640-8 (Version None)
Quarter: 2008Q4

REPORT INFORMATION
  Report Type: 
  Country: None (occurrence: None)
  Receive Date: 20081121
  Receipt Date: 20081118
  Transmission Date: 20090506
  Serious: Yes (Death)
  Sender: FDA-Public Use
  Company Number: PHHY2008FI28770

PATIENT
  Sex: Male

DRUGS (1)
  1. EXELON [Suspect]
     Route: 062

REACTIONS (1)
  - DEATH [None]
